FAERS Safety Report 15140752 (Version 1)
Quarter: 2018Q3

REPORT INFORMATION
  Report Type: Spontaneous
  Country: IT (occurrence: IT)
  Receive Date: 20180713
  Receipt Date: 20180713
  Transmission Date: 20181010
  Serious: Yes (Other)
  Sender: FDA-Public Use
  Company Number: IT-PERRIGO-18IT006966

PATIENT

DRUGS (2)
  1. IMIQUIMOD. [Suspect]
     Active Substance: IMIQUIMOD
     Indication: ACTINIC KERATOSIS
  2. IMIQUIMOD. [Suspect]
     Active Substance: IMIQUIMOD
     Indication: SQUAMOUS CELL CARCINOMA OF SKIN
     Dosage: UNKNOWN, TWICE WEEKLY
     Route: 061

REACTIONS (2)
  - Off label use [Unknown]
  - Disease progression [Unknown]
